FAERS Safety Report 10161479 (Version 2)
Quarter: 2014Q2

REPORT INFORMATION
  Report Type: Spontaneous
  Country: US (occurrence: US)
  Receive Date: 20140509
  Receipt Date: 20140509
  Transmission Date: 20141212
  Serious: No
  Sender: FDA-Public Use
  Company Number: US-TEVA-418308USA

PATIENT
  Sex: Male

DRUGS (1)
  1. CLARAVIS [Suspect]
     Indication: ACNE CYSTIC
     Dosage: 20 MILLIGRAM DAILY;
     Route: 048
     Dates: end: 20130708

REACTIONS (1)
  - Insomnia [Recovered/Resolved]
